FAERS Safety Report 9476028 (Version 4)
Quarter: 2013Q3

REPORT INFORMATION
  Report Type: Spontaneous
  Country: FR (occurrence: FR)
  Receive Date: 20130826
  Receipt Date: 20130923
  Transmission Date: 20140515
  Serious: Yes (Hospitalization, Other)
  Sender: FDA-Public Use
  Company Number: FR-PFIZER INC-2013242025

PATIENT
  Age: 80 Year
  Sex: Female

DRUGS (15)
  1. XANAX [Suspect]
     Dosage: 0.25 MG, 1X/DAY
     Route: 048
     Dates: start: 20130712
  2. CEFTRIAXONE SODIUM [Suspect]
     Indication: INFECTION
     Dosage: 1 G DAILY
     Route: 042
     Dates: start: 20130701, end: 20130713
  3. ATARAX [Suspect]
     Indication: ABNORMAL BEHAVIOUR
     Dosage: 25 MG, 3X/DAY
     Route: 048
     Dates: start: 20130703, end: 20130710
  4. ATARAX [Suspect]
     Dosage: 25 MG, 3X/DAY
     Dates: start: 20130710, end: 20130713
  5. NORSET [Suspect]
     Indication: ABNORMAL BEHAVIOUR
     Dosage: 15 MG DAILY
     Route: 048
     Dates: start: 20130710
  6. TIAPRIDAL [Suspect]
     Indication: ABNORMAL BEHAVIOUR
     Dosage: 300 MG/ DAY
     Route: 048
     Dates: start: 20130703, end: 20130713
  7. IPRATROPIUM MERCK ADULTS [Suspect]
     Dosage: 1 DF, 4X/DAY
     Route: 055
     Dates: start: 20130628, end: 20130711
  8. IMOVANE [Suspect]
     Dosage: 7.5 MG DAILY
     Route: 048
     Dates: start: 20130705
  9. HYDROXYZINE [Suspect]
     Dosage: 100 MG, 100 MG/2 ML
     Route: 042
     Dates: start: 20130712, end: 20130712
  10. TERBUTALINE [Suspect]
     Dosage: 1 DF, 4X/DAY
     Route: 055
     Dates: start: 20130628, end: 20130711
  11. AVLOCARDYL LP [Concomitant]
     Dosage: 160 MG/ DAY
  12. PREVISCAN [Concomitant]
     Indication: BRONCHITIS
     Dosage: 0.25 DF/ DAY
  13. LASILIX [Concomitant]
     Dosage: 40 MG/ DAY
  14. TRIVASTAL LP [Concomitant]
     Dosage: 100 MG/ DAY
  15. INEXIUM [Concomitant]
     Dosage: 20 MG, 1X/DAY

REACTIONS (4)
  - Urinary retention [Recovered/Resolved]
  - Confusional state [Unknown]
  - Cognitive disorder [Unknown]
  - Off label use [Unknown]
